FAERS Safety Report 6771690-3 (Version None)
Quarter: 2010Q2

REPORT INFORMATION
  Report Type: 
  Country: None (occurrence: None)
  Receive Date: 20100611
  Receipt Date: 20100528
  Transmission Date: 20101027
  Serious: Yes (Hospitalization)
  Sender: FDA-Public Use
  Company Number: CTI_01184_2010

PATIENT
  Sex: Female

DRUGS (4)
  1. MEIACT (MEIACT MS - CFDITOREN PIVOXIL) [Suspect]
     Indication: UPPER RESPIRATORY TRACT INFLAMMATION
     Dosage: 300 MG, DAILY ORAL
     Route: 048
     Dates: start: 20100318, end: 20100319
  2. PL - NON - PYRAZOLONE COLD DRUG [Suspect]
     Indication: UPPER RESPIRATORY TRACT INFLAMMATION
     Dosage: 3G, DAILY ORAL
     Route: 048
     Dates: start: 20100318, end: 20100319
  3. FUDOSTEINE [Concomitant]
  4. EPINASTINE HYDROCHLORIDE [Concomitant]

REACTIONS (3)
  - HAEMOLYTIC URAEMIC SYNDROME [None]
  - RENAL FAILURE [None]
  - URTICARIA [None]
